FAERS Safety Report 10336600 (Version 1)
Quarter: 2014Q3

REPORT INFORMATION
  Report Type: Spontaneous
  Country: US (occurrence: US)
  Receive Date: 20140723
  Receipt Date: 20140723
  Transmission Date: 20150326
  Serious: No
  Sender: FDA-Public Use
  Company Number: US-BRISTOL-MYERS SQUIBB COMPANY-20475604

PATIENT
  Age: 84 Year
  Sex: Female
  Weight: 68.03 kg

DRUGS (7)
  1. SIMVASTATIN. [Concomitant]
     Active Substance: SIMVASTATIN
  2. MULTIVITAMIN [Concomitant]
     Active Substance: VITAMINS
  3. TOPROL XL [Concomitant]
     Active Substance: METOPROLOL SUCCINATE
     Dosage: TAKE 150MG DAILY
  4. LANSOPRAZOLE. [Concomitant]
     Active Substance: LANSOPRAZOLE
  5. COUMADIN [Suspect]
     Active Substance: WARFARIN SODIUM
     Dosage: PRESCRIPTION#: 038910661237??STARTED THERAPY A YEAR PRIOR TO THE DAY OF REPORTING
  6. OXYMORPHONE HCL [Concomitant]
  7. DIGOXIN. [Concomitant]
     Active Substance: DIGOXIN

REACTIONS (1)
  - Nausea [Unknown]
